FAERS Safety Report 20223539 (Version 1)
Quarter: 2021Q4

REPORT INFORMATION
  Report Type: Spontaneous
  Country: US (occurrence: None)
  Receive Date: 20211223
  Receipt Date: 20211223
  Transmission Date: 20220304
  Serious: Yes (Other)
  Sender: FDA-Public Use
  Company Number: None

PATIENT

DRUGS (1)
  1. ENBREL [Suspect]
     Active Substance: ETANERCEPT
     Indication: Rheumatoid arthritis
     Dosage: OTHER FREQUENCY : SEE B.6 (PAGE 2);?
     Route: 058
     Dates: start: 20160314

REACTIONS (2)
  - Knee arthroplasty [None]
  - Therapy interrupted [None]
